FAERS Safety Report 22319763 (Version 1)
Quarter: 2023Q2

REPORT INFORMATION
  Report Type: Spontaneous
  Country: US (occurrence: None)
  Receive Date: 20230512
  Receipt Date: 20230512
  Transmission Date: 20230722
  Serious: Yes (Other)
  Sender: FDA-Public Use
  Company Number: None

PATIENT
  Age: 86 Year
  Sex: Male

DRUGS (16)
  1. BOSULIF [Suspect]
     Active Substance: BOSUTINIB MONOHYDRATE
     Indication: Neoplasm malignant
     Route: 048
     Dates: start: 20170224
  2. ARANESP INJ [Concomitant]
  3. ASPIRIN CHW [Concomitant]
  4. BYSTOLIC [Concomitant]
  5. CALCIUM CARBONATE [Concomitant]
     Active Substance: CALCIUM CARBONATE
  6. DUREZOL EMU [Concomitant]
  7. DYAZIDE [Concomitant]
     Active Substance: HYDROCHLOROTHIAZIDE\TRIAMTERENE
     Dosage: FREQUENCY : UNKNOWN;?
  8. FOLIC ACID [Concomitant]
  9. LEVOFLOXACIN [Concomitant]
     Active Substance: LEVOFLOXACIN
  10. LOMOTIL [Concomitant]
     Active Substance: ATROPINE SULFATE\DIPHENOXYLATE HYDROCHLORIDE
  11. METFORMIN TAB [Concomitant]
  12. MYRBETRIQ [Concomitant]
     Active Substance: MIRABEGRON
  13. NIFEDIPINE [Concomitant]
     Active Substance: NIFEDIPINE
  14. OLMESA MEDOX [Concomitant]
  15. POT CHLORIDE [Concomitant]
  16. PRAVASTATIN [Concomitant]
     Active Substance: PRAVASTATIN

REACTIONS (3)
  - Fall [None]
  - Hip fracture [None]
  - Therapy interrupted [None]

NARRATIVE: CASE EVENT DATE: 20221001
